FAERS Safety Report 10040688 (Version 2)
Quarter: 2014Q2

REPORT INFORMATION
  Report Type: Spontaneous
  Country: US (occurrence: US)
  Receive Date: 20140327
  Receipt Date: 20140620
  Transmission Date: 20141212
  Serious: Yes (Other)
  Sender: FDA-Public Use
  Company Number: US-ELI_LILLY_AND_COMPANY-US201403006442

PATIENT
  Sex: Female

DRUGS (2)
  1. HUMALOG 25% LISPRO, 75% NPL [Suspect]
     Indication: DIABETES MELLITUS INADEQUATE CONTROL
     Dosage: 50 U, BID
     Route: 065
     Dates: start: 20140209
  2. ZETIA [Concomitant]
     Dosage: UNK

REACTIONS (8)
  - Dyspnoea [Recovering/Resolving]
  - Nausea [Recovering/Resolving]
  - Mood altered [Unknown]
  - Myalgia [Recovering/Resolving]
  - Mobility decreased [Recovering/Resolving]
  - Pain [Recovered/Resolved]
  - Fluid retention [Unknown]
  - Dizziness [Recovering/Resolving]
